FAERS Safety Report 23551926 (Version 1)
Quarter: 2024Q1

REPORT INFORMATION
  Report Type: Report from Study
  Country: US (occurrence: US)
  Receive Date: 20240222
  Receipt Date: 20240222
  Transmission Date: 20240410
  Serious: Yes (Hospitalization, Other)
  Sender: FDA-Public Use
  Company Number: US-GILEAD-2024-0662834

PATIENT
  Sex: Female

DRUGS (1)
  1. AZTREONAM LYSINE [Suspect]
     Active Substance: AZTREONAM LYSINE
     Indication: Cystic fibrosis
     Dosage: 1 VIAL OF 1 ML (75 MG) VIA ALTERA NEBULIZER THREE TIMES DAILY EVERY OTHER MONTH
     Route: 055
     Dates: start: 202402

REACTIONS (1)
  - Cystic fibrosis [Unknown]
